FAERS Safety Report 11389225 (Version 1)
Quarter: 2015Q3

REPORT INFORMATION
  Report Type: Spontaneous
  Country: US (occurrence: US)
  Receive Date: 20150817
  Receipt Date: 20150817
  Transmission Date: 20151125
  Serious: No
  Sender: FDA-Public Use
  Company Number: US-PFIZER INC-2015268412

PATIENT
  Age: 83 Year
  Sex: Male
  Weight: 79 kg

DRUGS (6)
  1. OMEPRAZOLE. [Concomitant]
     Active Substance: OMEPRAZOLE
     Indication: GASTROOESOPHAGEAL REFLUX DISEASE
     Dosage: 40 MG, DAILY (ONE CAPSULE DAILY)
  2. LYRICA [Suspect]
     Active Substance: PREGABALIN
     Dosage: 200 MG, 2X/DAY
  3. LYRICA [Suspect]
     Active Substance: PREGABALIN
     Indication: NEUROPATHY PERIPHERAL
     Dosage: AT 75MG TWICE DAILY OR 150 MG DAILY UNK MG, UNK
     Dates: start: 2013
  4. SIMVASTATIN. [Concomitant]
     Active Substance: SIMVASTATIN
     Dosage: 10 MG, DAILY
  5. TAMSULOSIN [Concomitant]
     Active Substance: TAMSULOSIN
     Indication: URINE FLOW DECREASED
     Dosage: 4 MG, DAILY
  6. NASONEX [Concomitant]
     Active Substance: MOMETASONE FUROATE
     Dosage: UNK UNK, DAILY (17GRAMS, NIGHTLY 3 SPRAYS PER NOSTRIL ONCE DAILY)

REACTIONS (9)
  - Tremor [Unknown]
  - Emotional distress [Unknown]
  - Hypersensitivity [Recovering/Resolving]
  - Skin lesion [Recovering/Resolving]
  - Rash [Recovering/Resolving]
  - Drug effect incomplete [Unknown]
  - Pruritus [Recovering/Resolving]
  - Hyperaesthesia [Recovering/Resolving]
  - Blister [Recovering/Resolving]

NARRATIVE: CASE EVENT DATE: 20150601
